FAERS Safety Report 8928819 (Version 1)
Quarter: 2012Q4

REPORT INFORMATION
  Report Type: Spontaneous
  Country: US (occurrence: None)
  Receive Date: 20121126
  Receipt Date: 20121126
  Transmission Date: 20130627
  Serious: Yes (Other)
  Sender: FDA-Public Use
  Company Number: None

PATIENT
  Age: 45 Year
  Sex: Female
  Weight: 53.52 kg

DRUGS (2)
  1. EQUATE IBUPROFEN [Suspect]
     Indication: BACK PAIN
     Route: 048
  2. EQUATE IBUPROFEN [Suspect]
     Indication: MENSTRUAL CRAMPS
     Route: 048

REACTIONS (5)
  - Tinnitus [None]
  - Vertigo [None]
  - Visual impairment [None]
  - Balance disorder [None]
  - Ototoxicity [None]
